FAERS Safety Report 6966111-1 (Version None)
Quarter: 2010Q3

REPORT INFORMATION
  Report Type: 
  Country: None (occurrence: None)
  Receive Date: 20100903
  Receipt Date: 20100824
  Transmission Date: 20110219
  Serious: Yes (Other)
  Sender: FDA-Public Use
  Company Number: PHHY2010US56059

PATIENT
  Sex: Female

DRUGS (2)
  1. AREDIA [Suspect]
     Indication: METASTASES TO BONE
     Dosage: UNK
     Dates: start: 19960101
  2. ZOMETA [Suspect]
     Dosage: UNK
     Dates: start: 19960101

REACTIONS (6)
  - BONE DISORDER [None]
  - ENDODONTIC PROCEDURE [None]
  - FOOT FRACTURE [None]
  - GAIT DISTURBANCE [None]
  - OSTEONECROSIS OF JAW [None]
  - TOOTH EXTRACTION [None]
